FAERS Safety Report 7000539-9 (Version None)
Quarter: 2010Q3

REPORT INFORMATION
  Report Type: 
  Country: None (occurrence: None)
  Receive Date: 20100920
  Receipt Date: 20100217
  Transmission Date: 20110219
  Serious: Yes (Other)
  Sender: FDA-Public Use
  Company Number: US-ASTRAZENECA-2008UW27448

PATIENT
  Age: 50 Year
  Sex: Male
  Weight: 84.4 kg

DRUGS (8)
  1. SEROQUEL [Suspect]
     Route: 048
     Dates: start: 20001201, end: 20031001
  2. SEROQUEL [Suspect]
     Route: 048
     Dates: start: 20040615
  3. GEODON [Concomitant]
     Dosage: 40 MG, 50 MG DISPENSED
     Dates: start: 20060115
  4. RISPERDAL [Concomitant]
     Dates: start: 20070410
  5. ZYPREXA [Concomitant]
     Dates: start: 20030624
  6. REMERON [Concomitant]
     Indication: DEPRESSION
     Dates: start: 20030624
  7. FLUOXETINE [Concomitant]
     Dates: start: 20060606
  8. TEMAZEPAM [Concomitant]
     Dates: start: 20030624

REACTIONS (2)
  - PANCREATITIS [None]
  - TYPE 2 DIABETES MELLITUS [None]
